FAERS Safety Report 9029886 (Version 2)
Quarter: 2013Q1

REPORT INFORMATION
  Report Type: Report from Study
  Country: GR (occurrence: GR)
  Receive Date: 20130124
  Receipt Date: 20130208
  Transmission Date: 20140127
  Serious: Yes (Death, Hospitalization)
  Sender: FDA-Public Use
  Company Number: GR-CELGENEUS-066-21880-13011331

PATIENT
  Age: 85 Year
  Sex: Male

DRUGS (21)
  1. REVLIMID [Suspect]
     Indication: PLASMA CELL MYELOMA
     Dosage: 15 MILLIGRAM
     Route: 048
     Dates: start: 20120419, end: 20130103
  2. DEXAMETHASONE [Suspect]
     Indication: PLASMA CELL MYELOMA
     Dosage: 40 MILLIGRAM
     Route: 048
     Dates: start: 20120419, end: 20121227
  3. INSULIN HUMAN [Concomitant]
     Indication: PRODUCT USED FOR UNKNOWN INDICATION
     Route: 065
     Dates: start: 20120601, end: 20130116
  4. KAYEXALATE [Concomitant]
     Indication: PRODUCT USED FOR UNKNOWN INDICATION
     Route: 065
     Dates: start: 20120601, end: 20130116
  5. VALACICLOVIR [Concomitant]
     Indication: PRODUCT USED FOR UNKNOWN INDICATION
     Route: 065
     Dates: start: 20120419, end: 20130103
  6. BACTRIMEL [Concomitant]
     Indication: PRODUCT USED FOR UNKNOWN INDICATION
     Route: 065
     Dates: start: 20120419, end: 20130103
  7. OMEPRAZOLE [Concomitant]
     Indication: PRODUCT USED FOR UNKNOWN INDICATION
     Route: 065
     Dates: start: 20120419, end: 20130103
  8. ACETYLSALICYLIC ACID [Concomitant]
     Indication: ANTIPLATELET THERAPY
     Route: 065
     Dates: start: 20120419, end: 20130103
  9. EPOETIN ALFA [Concomitant]
     Indication: PRODUCT USED FOR UNKNOWN INDICATION
     Route: 065
     Dates: start: 20120725, end: 20130116
  10. IPRATROPIUM [Concomitant]
     Indication: PRODUCT USED FOR UNKNOWN INDICATION
     Route: 065
     Dates: start: 20120903, end: 20130116
  11. BUDESONIDE [Concomitant]
     Indication: PRODUCT USED FOR UNKNOWN INDICATION
     Route: 065
     Dates: start: 20120903, end: 20130116
  12. ALLOPURINOL [Concomitant]
     Indication: PRODUCT USED FOR UNKNOWN INDICATION
     Route: 065
     Dates: start: 20121017, end: 20130116
  13. ALLOPURINOL [Concomitant]
     Route: 065
     Dates: start: 20120919, end: 20121002
  14. NORMAL SALINE [Concomitant]
     Indication: PRODUCT USED FOR UNKNOWN INDICATION
     Dosage: 0.9%
     Route: 065
     Dates: start: 20121212, end: 20121212
  15. NORMAL SALINE [Concomitant]
     Dosage: 0.9%
     Route: 065
     Dates: start: 20121227, end: 20121227
  16. NORMAL SALINE [Concomitant]
     Dosage: 0.9%
     Route: 065
     Dates: start: 20120725, end: 20120725
  17. NORMAL SALINE [Concomitant]
     Dosage: 0.9%
     Route: 065
     Dates: start: 20120808, end: 20120808
  18. NORMAL SALINE [Concomitant]
     Dosage: 0.9%
     Route: 065
     Dates: start: 20121114, end: 20121114
  19. NORMAL SALINE [Concomitant]
     Dosage: 0.9%
     Route: 065
     Dates: start: 20120713, end: 20120713
  20. PARACETAMOL [Concomitant]
     Indication: PRODUCT USED FOR UNKNOWN INDICATION
     Route: 065
     Dates: start: 20121218, end: 20121225
  21. GLUCONIC CALCIUM [Concomitant]
     Indication: PRODUCT USED FOR UNKNOWN INDICATION
     Route: 065
     Dates: start: 20121227, end: 20121227

REACTIONS (3)
  - Cerebrovascular accident [Fatal]
  - Renal failure acute [Not Recovered/Not Resolved]
  - Hip fracture [Not Recovered/Not Resolved]
